FAERS Safety Report 17168319 (Version 16)
Quarter: 2025Q3

REPORT INFORMATION
  Report Type: Report from Study
  Country: US (occurrence: US)
  Receive Date: 20191218
  Receipt Date: 20250820
  Transmission Date: 20251020
  Serious: Yes (Hospitalization, Other)
  Sender: TAKEDA
  Company Number: US-SHIRE-US201943769

PATIENT
  Age: 9 Year
  Sex: Female
  Weight: 21 kg

DRUGS (14)
  1. HUMAN IMMUNOGLOBULIN G [Suspect]
     Active Substance: HUMAN IMMUNOGLOBULIN G
     Indication: Hypergammaglobulinaemia
     Dosage: 2 GRAM, 1/WEEK
     Dates: start: 20180703
  2. HUMAN IMMUNOGLOBULIN G [Suspect]
     Active Substance: HUMAN IMMUNOGLOBULIN G
     Indication: Immune system disorder
     Dosage: 3 GRAM, 1/WEEK
  3. ACETAMINOPHEN [Concomitant]
     Active Substance: ACETAMINOPHEN
  4. DIPHENHYDRAMINE [Concomitant]
     Active Substance: DIPHENHYDRAMINE
  5. LIDOCAINE [Concomitant]
     Active Substance: LIDOCAINE
  6. EPINEPHRINE [Concomitant]
     Active Substance: EPINEPHRINE
  7. MACRODANTIN [Concomitant]
     Active Substance: NITROFURANTOIN
  8. NIZATIDINE [Concomitant]
     Active Substance: NIZATIDINE
  9. VALTOCO [Concomitant]
     Active Substance: DIAZEPAM
  10. SIMETHICONE (DIMETHICONE) [Concomitant]
     Active Substance: DIMETHICONE
  11. VIMPAT [Concomitant]
     Active Substance: LACOSAMIDE
  12. CITALOPRAM HYDROBROMIDE [Concomitant]
     Active Substance: CITALOPRAM HYDROBROMIDE
  13. FAMOTIDINE [Concomitant]
     Active Substance: FAMOTIDINE
  14. CLONIDINE HYDROCHLORIDE [Concomitant]
     Active Substance: CLONIDINE HYDROCHLORIDE

REACTIONS (16)
  - Blood sodium decreased [Unknown]
  - Dehydration [Unknown]
  - Gastric infection [Unknown]
  - Metabolic acidosis [Unknown]
  - Pneumonia [Unknown]
  - Tracheitis [Not Recovered/Not Resolved]
  - Respiratory failure [Unknown]
  - Cardiac arrest [Unknown]
  - Seizure [Unknown]
  - Dyspnoea [Unknown]
  - Ear infection [Unknown]
  - Product dose omission issue [Unknown]
  - COVID-19 [Unknown]
  - Sinusitis [Unknown]
  - Upper respiratory tract infection [Recovered/Resolved]
  - Anxiety [Unknown]

NARRATIVE: CASE EVENT DATE: 20191129
